FAERS Safety Report 19152980 (Version 2)
Quarter: 2021Q2

REPORT INFORMATION
  Report Type: Spontaneous
  Country: CA (occurrence: CA)
  Receive Date: 20210419
  Receipt Date: 20210421
  Transmission Date: 20210717
  Serious: Yes (Other)
  Sender: FDA-Public Use
  Company Number: CA-PFIZER INC-2021374711

PATIENT
  Age: 15 Year
  Sex: Male

DRUGS (3)
  1. CLOMIPRAMINE [Interacting]
     Active Substance: CLOMIPRAMINE
     Indication: ATTENTION DEFICIT HYPERACTIVITY DISORDER
     Dosage: 50 MG, 3X/DAY
  2. RISPERIDONE. [Interacting]
     Active Substance: RISPERIDONE
     Indication: ATTENTION DEFICIT HYPERACTIVITY DISORDER
     Dosage: 0.5 MG, 2X/DAY
  3. APO?ERYTHRO E?C [Suspect]
     Active Substance: ERYTHROMYCIN
     Indication: ACNE
     Dosage: 250 MG, 3X/DAY
     Route: 048

REACTIONS (3)
  - Serotonin syndrome [Recovering/Resolving]
  - Toxicity to various agents [Recovering/Resolving]
  - Drug interaction [Unknown]
